FAERS Safety Report 5735576-5 (Version None)
Quarter: 2008Q2

REPORT INFORMATION
  Report Type: 
  Country: None (occurrence: None)
  Receive Date: 20080512
  Receipt Date: 20071121
  Transmission Date: 20081010
  Serious: No
  Sender: FDA-Public Use
  Company Number: US-BOEHRINGER INGELHEIM GMBH, GERMANY-2006-BP-13581BP

PATIENT
  Sex: Female
  Weight: 53 kg

DRUGS (13)
  1. MIRAPEX [Suspect]
     Indication: PARKINSON'S DISEASE
     Dates: start: 20010601, end: 20041101
  2. SELEGILINE HCL [Concomitant]
     Indication: PARKINSON'S DISEASE
     Dates: start: 19990831, end: 19991231
  3. AMANTADINE HCL [Concomitant]
     Indication: PARKINSON'S DISEASE
     Dates: start: 20000818, end: 20001001
  4. CARBIDOPA AND LEVODOPA [Concomitant]
     Indication: PARKINSON'S DISEASE
     Dosage: 75MG/300MG
     Dates: start: 20020401
  5. ZOLOFT [Concomitant]
     Indication: DEPRESSION
     Dates: start: 20010101, end: 20030212
  6. PAXIL [Concomitant]
     Dates: start: 20030212, end: 20030615
  7. MIRTAZAPINE [Concomitant]
     Dates: start: 20040824, end: 20041101
  8. BUTALBITAL/ASA/CAFFEINE [Concomitant]
     Dates: start: 19980321
  9. TOBRAMYCIN SULFATE DROPS [Concomitant]
     Dates: start: 20030305
  10. OCUFLOX DROPS [Concomitant]
     Indication: CONJUNCTIVITIS
     Dates: start: 20030318
  11. IRON [Concomitant]
  12. TOBREX [Concomitant]
  13. AMITRIPTYLINE HCL [Concomitant]

REACTIONS (5)
  - ANXIETY [None]
  - EMOTIONAL DISTRESS [None]
  - FEAR [None]
  - OBSESSIVE-COMPULSIVE DISORDER [None]
  - PAIN [None]
